FAERS Safety Report 8089099-1 (Version None)
Quarter: 2012Q1

REPORT INFORMATION
  Report Type: 
  Country: None (occurrence: None)
  Receive Date: 20120128
  Receipt Date: 20110627
  Transmission Date: 20120608
  Serious: No
  Sender: FDA-Public Use
  Company Number: US-ABBOTT-11P-163-0834558-00

PATIENT
  Sex: Female

DRUGS (13)
  1. HUMIRA [Suspect]
     Indication: PSORIATIC ARTHROPATHY
     Route: 058
     Dates: start: 20110615
  2. DILTIAZEM HCL [Concomitant]
     Indication: HYPERTENSION
     Dosage: DAILY
  3. VENTOLIN [Concomitant]
     Indication: CHRONIC OBSTRUCTIVE PULMONARY DISEASE
     Route: 055
  4. LANTUS [Concomitant]
     Indication: DIABETES MELLITUS
     Dosage: 60 UNITS IN THE AM AND IN THE PM
  5. LORAZEPAM [Concomitant]
     Indication: ANXIETY
     Dosage: 1 AT 2PM AND 1 AT BEDTIME
  6. NOVOLOG [Concomitant]
     Indication: DIABETES MELLITUS
     Dosage: 40/45/50 DEPENDING ON SLIDING SCALE
  7. METHOTREXATE [Concomitant]
     Indication: INFLAMMATION
  8. PREDNISONE TAB [Concomitant]
     Indication: INFLAMMATION
     Dosage: DAILY
  9. FOLIC ACID [Concomitant]
     Indication: PRODUCT USED FOR UNKNOWN INDICATION
  10. LEVOTHYROXINE SODIUM [Concomitant]
     Indication: PRODUCT USED FOR UNKNOWN INDICATION
     Dosage: DAILY
  11. ADVAIR DISKUS 100/50 [Concomitant]
     Indication: CHRONIC OBSTRUCTIVE PULMONARY DISEASE
     Dosage: 1 PUFF BID EVERY 4 HOURS
  12. FUROSEMIDE [Concomitant]
     Indication: OEDEMA PERIPHERAL
     Dosage: 1 TABLET IN AM, 1 TABLET AT 4PM
  13. DIOVAN [Concomitant]
     Indication: HYPERTENSION
     Dosage: DAILY

REACTIONS (2)
  - HEADACHE [None]
  - NAUSEA [None]
